FAERS Safety Report 15087776 (Version 1)
Quarter: 2018Q2

REPORT INFORMATION
  Report Type: Spontaneous
  Country: FR (occurrence: FR)
  Receive Date: 20180629
  Receipt Date: 20180629
  Transmission Date: 20180711
  Serious: Yes (Hospitalization, Other)
  Sender: FDA-Public Use
  Company Number: FR-SUN PHARMACEUTICAL INDUSTRIES LTD-2018RR-176886

PATIENT
  Age: 11 Year
  Sex: Male

DRUGS (5)
  1. OXCARBAZEPINE. [Suspect]
     Active Substance: OXCARBAZEPINE
     Indication: SEIZURE
     Dosage: 300 MG, BID
     Route: 065
     Dates: start: 2008, end: 201509
  2. LEVETIRACETAM. [Suspect]
     Active Substance: LEVETIRACETAM
     Dosage: 900 MG, BID
     Route: 065
     Dates: start: 2008
  3. RISPERIDONE. [Suspect]
     Active Substance: RISPERIDONE
     Indication: ABNORMAL BEHAVIOUR
     Dosage: 0.25 MG, BID
     Route: 065
     Dates: start: 201508, end: 201509
  4. LEVETIRACETAM. [Suspect]
     Active Substance: LEVETIRACETAM
     Indication: SEIZURE
     Dosage: 450 MG, BID
     Route: 065
     Dates: start: 2008
  5. ARIPIPRAZOLE. [Suspect]
     Active Substance: ARIPIPRAZOLE
     Indication: ABNORMAL BEHAVIOUR
     Dosage: 5 MG, DAILY
     Route: 065
     Dates: start: 201509, end: 201601

REACTIONS (5)
  - Urinary retention [Recovered/Resolved]
  - Disease recurrence [Unknown]
  - Somnolence [Unknown]
  - Disease progression [Unknown]
  - Drug ineffective [Unknown]

NARRATIVE: CASE EVENT DATE: 201508
